FAERS Safety Report 8958359 (Version 1)
Quarter: 2012Q4

REPORT INFORMATION
  Report Type: 
  Country: US (occurrence: US)
  Receive Date: 20121210
  Receipt Date: 20121210
  Transmission Date: 20130627
  Serious: Yes (Other)
  Sender: FDA-Public Use
  Company Number: US-GLAXOSMITHKLINE-A1003077A

PATIENT
  Age: 69 Year
  Sex: Female

DRUGS (6)
  1. VOTRIENT [Suspect]
     Indication: RENAL CANCER
     Dosage: 600MG Per day
     Route: 048
     Dates: start: 20121117
  2. BYSTOLIC [Concomitant]
  3. LEVOTHYROXINE [Concomitant]
  4. PRAVASTATIN [Concomitant]
  5. ASPIRIN [Concomitant]
  6. VITAMIN D [Concomitant]

REACTIONS (10)
  - Pneumonia [Unknown]
  - Dizziness [Unknown]
  - Hot flush [Unknown]
  - Pain [Unknown]
  - Non-cardiac chest pain [Not Recovered/Not Resolved]
  - Arthralgia [Unknown]
  - Arthropathy [Unknown]
  - Gait disturbance [Unknown]
  - Breast pain [Unknown]
  - Hyperhidrosis [Unknown]
